FAERS Safety Report 9544144 (Version 3)
Quarter: 2013Q4

REPORT INFORMATION
  Report Type: Report from Study
  Country: DE (occurrence: DE)
  Receive Date: 20130923
  Receipt Date: 20131205
  Transmission Date: 20140711
  Serious: Yes (Hospitalization)
  Sender: FDA-Public Use
  Company Number: DE-ABBVIE-13P-062-1148627-00

PATIENT
  Age: 33 Year
  Sex: Female
  Weight: 64 kg

DRUGS (3)
  1. HUMIRA [Suspect]
     Indication: CROHN^S DISEASE
     Dosage: FREQUENCY: NOT REPORTED
     Route: 058
     Dates: start: 20120607
  2. PARACETAMOL [Concomitant]
     Indication: HEADACHE
     Dosage: 4 TABLETS A DAY AS NEEDED
     Route: 048
  3. PANTOZOL [Concomitant]
     Indication: PRODUCT USED FOR UNKNOWN INDICATION
     Route: 048

REACTIONS (8)
  - Endometriosis [Unknown]
  - Crohn^s disease [Recovered/Resolved]
  - Lymphadenitis [Unknown]
  - Peritonitis [Unknown]
  - Appendicitis [Unknown]
  - Cerebrospinal fluid leakage [Unknown]
  - Post lumbar puncture syndrome [Unknown]
  - Post procedural complication [Unknown]
